FAERS Safety Report 21241800 (Version 2)
Quarter: 2022Q4

REPORT INFORMATION
  Report Type: Report from Study
  Country: US (occurrence: US)
  Receive Date: 20220823
  Receipt Date: 20221017
  Transmission Date: 20230113
  Serious: No
  Sender: FDA-Public Use
  Company Number: US-BIOVITRUM-2022US09552

PATIENT
  Age: 1 Year
  Sex: Male

DRUGS (7)
  1. KINERET [Suspect]
     Active Substance: ANAKINRA
     Indication: Juvenile idiopathic arthritis
     Dates: start: 20220805
  2. KINERET [Suspect]
     Active Substance: ANAKINRA
     Dates: start: 20220805
  3. KINERET [Suspect]
     Active Substance: ANAKINRA
     Dates: start: 20220824
  4. PEPCID [Concomitant]
     Active Substance: FAMOTIDINE
  5. KEFLEX [Concomitant]
     Active Substance: CEPHALEXIN
  6. PREDNISONE [Concomitant]
     Active Substance: PREDNISONE
  7. ASPIRIN [Concomitant]
     Active Substance: ASPIRIN

REACTIONS (4)
  - Viral infection [Unknown]
  - Rash [Unknown]
  - Accidental overdose [Unknown]
  - Off label use [Not Recovered/Not Resolved]

NARRATIVE: CASE EVENT DATE: 20220824
